FAERS Safety Report 17757497 (Version 1)
Quarter: 2020Q2

REPORT INFORMATION
  Report Type: Spontaneous
  Country: CA (occurrence: CA)
  Receive Date: 20200507
  Receipt Date: 20200507
  Transmission Date: 20200714
  Serious: Yes (Death, Hospitalization, Other)
  Sender: FDA-Public Use
  Company Number: CA-TEVA-2020-CA-1233090

PATIENT
  Age: 87 Year
  Sex: Male

DRUGS (14)
  1. BISOPROLOL [Concomitant]
     Active Substance: BISOPROLOL
  2. HYDROMORPHONE [Concomitant]
     Active Substance: HYDROMORPHONE
  3. SODIUM CHLORIDE. [Concomitant]
     Active Substance: SODIUM CHLORIDE
     Route: 045
  4. SILDENAFIL CITRATE. [Suspect]
     Active Substance: SILDENAFIL CITRATE
     Indication: PULMONARY ARTERIAL HYPERTENSION
     Dosage: 60 MILLIGRAM DAILY;
     Route: 048
  5. ELIQUIS [Concomitant]
     Active Substance: APIXABAN
  6. ATORVASTATIN [Concomitant]
     Active Substance: ATORVASTATIN
  7. FUROSEMIDE. [Concomitant]
     Active Substance: FUROSEMIDE
     Dosage: 80 MILLIGRAM DAILY;
  8. LORAZEPAM. [Concomitant]
     Active Substance: LORAZEPAM
  9. POTASSIUM [Concomitant]
     Active Substance: POTASSIUM
  10. ACETAMINOPHEN. [Concomitant]
     Active Substance: ACETAMINOPHEN
  11. VOLIBRIS [Concomitant]
     Active Substance: AMBRISENTAN
  12. DIMENHYDRINATE. [Concomitant]
     Active Substance: DIMENHYDRINATE
  13. SENOKOT [Concomitant]
     Active Substance: SENNOSIDES
  14. PANTOPRAZOLE [Concomitant]
     Active Substance: PANTOPRAZOLE

REACTIONS (10)
  - Death [Fatal]
  - Aspiration [Fatal]
  - Insomnia [Fatal]
  - Cough [Fatal]
  - Joint swelling [Fatal]
  - Peripheral swelling [Fatal]
  - Dyspnoea [Fatal]
  - Cellulitis [Fatal]
  - Gout [Fatal]
  - Haematemesis [Fatal]
